FAERS Safety Report 10204087 (Version 2)
Quarter: 2014Q2

REPORT INFORMATION
  Report Type: Spontaneous
  Country: FR (occurrence: FR)
  Receive Date: 20140529
  Receipt Date: 20140529
  Transmission Date: 20141212
  Serious: Yes (Other)
  Sender: FDA-Public Use
  Company Number: FR-JNJFOC-20140317954

PATIENT
  Age: 27 Year
  Sex: Female

DRUGS (5)
  1. REMICADE [Suspect]
     Indication: CROHN^S DISEASE
     Route: 042
     Dates: start: 20130314
  2. REMICADE [Suspect]
     Indication: CROHN^S DISEASE
     Route: 042
     Dates: start: 20140120
  3. REMICADE [Suspect]
     Indication: CROHN^S DISEASE
     Dosage: 10TH INFUSION
     Route: 042
     Dates: start: 20140305, end: 20140305
  4. HYDROCORTISONE [Concomitant]
     Indication: PREMEDICATION
     Route: 065
  5. POLARAMIN [Concomitant]
     Indication: PREMEDICATION
     Route: 065

REACTIONS (4)
  - Rash [Recovered/Resolved]
  - Infusion related reaction [Recovered/Resolved]
  - Respiratory disorder [Recovered/Resolved]
  - Tongue oedema [Recovered/Resolved]
